FAERS Safety Report 11256266 (Version 1)
Quarter: 2015Q3

REPORT INFORMATION
  Report Type: Spontaneous
  Country: DE (occurrence: DE)
  Receive Date: 20150709
  Receipt Date: 20150709
  Transmission Date: 20151125
  Serious: Yes (Death)
  Sender: FDA-Public Use
  Company Number: DE-ELI_LILLY_AND_COMPANY-DE201507001300

PATIENT
  Age: 80 Year
  Sex: Female
  Weight: 40 kg

DRUGS (3)
  1. HUMALOG [Suspect]
     Active Substance: INSULIN LISPRO
     Indication: DIABETES MELLITUS
     Route: 058
  2. INSUMAN [Suspect]
     Active Substance: INSULIN HUMAN
     Indication: DIABETES MELLITUS
     Route: 065
  3. XARELTO [Concomitant]
     Active Substance: RIVAROXABAN

REACTIONS (1)
  - Death [Fatal]
